FAERS Safety Report 7774184-1 (Version None)
Quarter: 2011Q3

REPORT INFORMATION
  Report Type: 
  Country: None (occurrence: None)
  Receive Date: 20110923
  Receipt Date: 20110916
  Transmission Date: 20111222
  Serious: Yes (Other)
  Sender: FDA-Public Use
  Company Number: CA-PFIZER INC-2011205789

PATIENT
  Age: 67 Year
  Sex: Male

DRUGS (4)
  1. XALATAN [Suspect]
     Indication: GLAUCOMA
     Dosage: 1 GTT IN BOTH EYES, 1X/DAY
     Route: 047
  2. METFORMIN [Concomitant]
     Indication: DIABETES MELLITUS
     Dosage: 2 X (500MG TABS) 1X IN MORNING, 1 X IN EVENING
  3. LIPITOR [Concomitant]
     Indication: BLOOD CHOLESTEROL INCREASED
     Dosage: 5MG ONE DAY, 10MG NEXT DAY (ALTERNATING)
  4. LOTENSIN [Concomitant]
     Indication: BLOOD PRESSURE INCREASED
     Dosage: 1 DF, 1X/DAY

REACTIONS (1)
  - INTRAOCULAR PRESSURE INCREASED [None]
